FAERS Safety Report 5763195-3 (Version None)
Quarter: 2008Q2

REPORT INFORMATION
  Report Type: 
  Country: None (occurrence: None)
  Receive Date: 20080609
  Receipt Date: 20080528
  Transmission Date: 20081010
  Serious: Yes (Life-Threatening, Other)
  Sender: FDA-Public Use
  Company Number: JP-ELI_LILLY_AND_COMPANY-JP200803003966

PATIENT
  Sex: Female
  Weight: 49.7 kg

DRUGS (5)
  1. EVISTA [Suspect]
     Indication: OSTEOPOROSIS
     Dosage: 60 MG, DAILY (1/D)
     Route: 048
     Dates: start: 20070717, end: 20071225
  2. MUCOSTA [Concomitant]
     Indication: PROPHYLAXIS
     Dosage: 100 MG, DAILY (1/D)
     Route: 048
     Dates: start: 20070511
  3. ASPIRIN [Concomitant]
     Indication: CEREBRAL INFARCTION
     Dosage: 100 MG, DAILY (1/D)
     Route: 048
     Dates: start: 20070511
  4. ALFAROL [Concomitant]
     Indication: OSTEOPOROSIS
     Dosage: 1 UG, DAILY (1/D)
     Route: 048
     Dates: start: 20070717
  5. MERISLON [Concomitant]
     Indication: DIZZINESS
     Dosage: 18 MG, DAILY (1/D)
     Route: 048
     Dates: start: 20071218, end: 20071225

REACTIONS (1)
  - TRANSIENT ISCHAEMIC ATTACK [None]
